FAERS Safety Report 8579000-6 (Version None)
Quarter: 2012Q3

REPORT INFORMATION
  Report Type: 
  Country: None (occurrence: None)
  Receive Date: 20120808
  Receipt Date: 20120806
  Transmission Date: 20120928
  Serious: Yes (Life-Threatening, Hospitalization)
  Sender: FDA-Public Use
  Company Number: IT-PFIZER INC-2012191689

PATIENT
  Age: 79 Year
  Sex: Male

DRUGS (6)
  1. NORVASC [Concomitant]
     Dosage: UNK
  2. ASPIRIN [Concomitant]
     Dosage: UNK
  3. RAMIPRIL [Concomitant]
     Dosage: UNK
  4. TRIAZOLAM [Suspect]
     Indication: INSOMNIA
     Dosage: 20 DROPS DAILY
     Route: 048
     Dates: start: 20120724, end: 20120727
  5. METOPROLOL TARTRATE [Concomitant]
     Dosage: UNK
  6. RANEXA [Concomitant]
     Dosage: UNK

REACTIONS (4)
  - ORTHOSTATIC HYPOTENSION [None]
  - HEAD INJURY [None]
  - SKULL FRACTURE [None]
  - SYNCOPE [None]
